FAERS Safety Report 15968127 (Version 1)
Quarter: 2019Q1

REPORT INFORMATION
  Report Type: Spontaneous
  Country: US (occurrence: US)
  Receive Date: 20190215
  Receipt Date: 20190215
  Transmission Date: 20190418
  Serious: No
  Sender: FDA-Public Use
  Company Number: US-SA-2019SA043062

PATIENT
  Sex: Female

DRUGS (16)
  1. PAXIL [PIROXICAM] [Concomitant]
     Active Substance: PIROXICAM
  2. HYDROCODONE BITARTRATE AND ACETAMINOPHEN [Concomitant]
     Active Substance: ACETAMINOPHEN\HYDROCODONE BITARTRATE
  3. PREMARIN [Concomitant]
     Active Substance: ESTROGENS, CONJUGATED
  4. PREMARIN [Concomitant]
     Active Substance: ESTROGENS, CONJUGATED
  5. LORAZEPAM. [Concomitant]
     Active Substance: LORAZEPAM
  6. METRONIDAZOLE. [Concomitant]
     Active Substance: METRONIDAZOLE
  7. AMOXICILLIN. [Concomitant]
     Active Substance: AMOXICILLIN
  8. LEVOTHYROXIN [Concomitant]
     Active Substance: LEVOTHYROXINE
  9. NITROFUR [Concomitant]
     Active Substance: NITROFURANTOIN
  10. OXYBUTYNIN. [Concomitant]
     Active Substance: OXYBUTYNIN CHLORIDE
  11. CLOPIDOGREL [Concomitant]
     Active Substance: CLOPIDOGREL BISULFATE
  12. SIMVASTATIN. [Concomitant]
     Active Substance: SIMVASTATIN
  13. PRALUENT [Suspect]
     Active Substance: ALIROCUMAB
     Indication: HYPERLIPIDAEMIA
     Dosage: 75 MG, QOW
     Route: 058
  14. LEVOTHYROXINE SODIUM. [Concomitant]
     Active Substance: LEVOTHYROXINE SODIUM
  15. LISINOPRIL. [Concomitant]
     Active Substance: LISINOPRIL
  16. VENTOLIN HFA [Concomitant]
     Active Substance: ALBUTEROL SULFATE

REACTIONS (1)
  - Product dose omission [Unknown]
